FAERS Safety Report 9477803 (Version 3)
Quarter: 2015Q1

REPORT INFORMATION
  Report Type: Report from Study
  Country: US (occurrence: US)
  Receive Date: 20130827
  Receipt Date: 20150123
  Transmission Date: 20150721
  Serious: Yes (Disabling, Other)
  Sender: FDA-Public Use
  Company Number: US-BRISTOL-MYERS SQUIBB COMPANY-19195452

PATIENT
  Age: 51 Year
  Sex: Female
  Weight: 55 kg

DRUGS (44)
  1. BENADRYL [Concomitant]
     Active Substance: DIPHENHYDRAMINE HYDROCHLORIDE
     Dates: start: 20130801, end: 20130819
  2. NEURONTIN [Concomitant]
     Active Substance: GABAPENTIN
     Dosage: UNK
     Dates: start: 20130826
  3. OXYCONTIN [Concomitant]
     Active Substance: OXYCODONE HYDROCHLORIDE
     Dosage: UNK
     Dates: start: 20130718
  4. LORAZEPAM. [Concomitant]
     Active Substance: LORAZEPAM
     Dosage: UNK
     Dates: start: 20130722
  5. MEGACE [Concomitant]
     Active Substance: MEGESTROL ACETATE
     Dates: start: 20130814, end: 20130819
  6. CIPROFLOXACIN. [Concomitant]
     Active Substance: CIPROFLOXACIN
     Dates: start: 20130925
  7. DOCUSATE SODIUM. [Concomitant]
     Active Substance: DOCUSATE SODIUM
     Dates: start: 20130930
  8. PANTOPRAZOLE SODIUM [Concomitant]
     Active Substance: PANTOPRAZOLE SODIUM
     Dates: start: 20130930
  9. SODIUM PHOSPHATES                  /01546201/ [Concomitant]
     Dates: start: 20130930
  10. LACTULOSE. [Concomitant]
     Active Substance: LACTULOSE
     Dosage: UNK
     Dates: start: 20130722
  11. HYDROMORPHONE [Concomitant]
     Active Substance: HYDROMORPHONE
     Dates: start: 20130930
  12. MEGESTROL [Concomitant]
     Active Substance: MEGESTROL
     Dates: start: 20131001
  13. IPILIMUMAB [Suspect]
     Active Substance: IPILIMUMAB
     Indication: NON-SMALL CELL LUNG CANCER
     Dosage: TOATAL DOSE:168MG  142ML  149MG IV
     Route: 042
     Dates: start: 20130730
  14. BENADRYL [Concomitant]
     Active Substance: DIPHENHYDRAMINE HYDROCHLORIDE
     Dosage: UNK
     Dates: start: 20130730, end: 20130819
  15. LACTULOSE. [Concomitant]
     Active Substance: LACTULOSE
     Dates: start: 20130812, end: 20130812
  16. HYDROMORPHONE HCL [Concomitant]
     Active Substance: HYDROMORPHONE HYDROCHLORIDE
     Dates: start: 20130930
  17. TYLENOL [Concomitant]
     Active Substance: ACETAMINOPHEN
     Dates: start: 20130730, end: 20130730
  18. LIDEX [Concomitant]
     Active Substance: FLUOCINONIDE
     Dosage: UNK
     Dates: start: 20130801
  19. MEGACE [Concomitant]
     Active Substance: MEGESTROL ACETATE
     Dosage: 01OCT13
     Dates: start: 20130906
  20. GLYCOPYRROLATE                     /00196201/ [Concomitant]
     Active Substance: GLYCOPYRRONIUM
     Dates: start: 20130813, end: 20130813
  21. METHADONE HCL [Concomitant]
     Active Substance: METHADONE HYDROCHLORIDE
     Dates: start: 20130930
  22. SODIUM CHLORIDE. [Concomitant]
     Active Substance: SODIUM CHLORIDE
     Dates: start: 20130930
  23. TYLENOL [Concomitant]
     Active Substance: ACETAMINOPHEN
     Dosage: UNK
     Dates: start: 20130826
  24. DILAUDID [Concomitant]
     Active Substance: HYDROMORPHONE HYDROCHLORIDE
     Dosage: UNK UNK, PRN
     Dates: start: 20130819
  25. ENOXAPARIN SODIUM. [Concomitant]
     Active Substance: ENOXAPARIN SODIUM
     Dates: start: 20130930
  26. NORMOSOL R [Concomitant]
     Dates: start: 20130813, end: 20130813
  27. NYSTATIN. [Concomitant]
     Active Substance: NYSTATIN
     Dates: start: 20130812, end: 20130812
  28. PERCOCET                           /00446701/ [Concomitant]
     Active Substance: ACETAMINOPHEN\OXYCODONE HYDROCHLORIDE\OXYCODONE TEREPHTHALATE
     Dates: start: 2013, end: 20130819
  29. FAMOTIDINE. [Concomitant]
     Active Substance: FAMOTIDINE
     Dosage: UNK
     Dates: start: 20130730, end: 20130730
  30. NYSTATIN. [Concomitant]
     Active Substance: NYSTATIN
  31. OXYCONTIN [Concomitant]
     Active Substance: OXYCODONE HYDROCHLORIDE
     Dates: start: 20130812, end: 20130813
  32. OXYCODONE [Concomitant]
     Active Substance: OXYCODONE
     Dates: start: 20130730, end: 20130730
  33. OXYCODONE [Concomitant]
     Active Substance: OXYCODONE
     Dates: start: 20130812, end: 20130813
  34. MEDROL [Concomitant]
     Active Substance: METHYLPREDNISOLONE
  35. METOCLOPRAMIDE. [Concomitant]
     Active Substance: METOCLOPRAMIDE
     Dates: start: 20130830
  36. PROPOFOL. [Concomitant]
     Active Substance: PROPOFOL
     Dates: start: 20130813, end: 20130813
  37. LIRILUMAB [Suspect]
     Active Substance: LIRILUMAB
     Indication: NON-SMALL CELL LUNG CANCER
     Dosage: TOTAL DOSE:17MG  12ML  14.9MG IV
     Route: 042
     Dates: start: 20130730
  38. LEXAPRO [Concomitant]
     Active Substance: ESCITALOPRAM OXALATE
  39. OXYCONTIN [Concomitant]
     Active Substance: OXYCODONE HYDROCHLORIDE
     Dates: start: 20130730, end: 20130730
  40. MORPHINE SULFATE. [Concomitant]
     Active Substance: MORPHINE SULFATE
     Dates: start: 20130812, end: 20130813
  41. REGLAN [Concomitant]
     Active Substance: METOCLOPRAMIDE HYDROCHLORIDE
     Dosage: UNK
     Dates: start: 20130830
  42. COLACE [Concomitant]
     Active Substance: DOCUSATE SODIUM
     Dates: start: 20130722, end: 20130819
  43. SENNA [Concomitant]
     Active Substance: SENNA LEAF\SENNOSIDES\SENNOSIDES A AND B
     Dates: start: 20130722, end: 20130819
  44. ZOSYN [Concomitant]
     Active Substance: PIPERACILLIN SODIUM\TAZOBACTAM SODIUM
     Dates: start: 20131007

REACTIONS (4)
  - Dry mouth [Recovered/Resolved]
  - Oesophageal motility disorder [Recovering/Resolving]
  - Dysphagia [Recovering/Resolving]
  - Pain [Recovering/Resolving]

NARRATIVE: CASE EVENT DATE: 20130812
